FAERS Safety Report 21278421 (Version 1)
Quarter: 2022Q3

REPORT INFORMATION
  Report Type: Spontaneous
  Country: US (occurrence: US)
  Receive Date: 20220831
  Receipt Date: 20220831
  Transmission Date: 20221026
  Serious: Yes (Other)
  Sender: FDA-Public Use
  Company Number: US-BRISTOL-MYERS SQUIBB COMPANY-2022-097042

PATIENT
  Age: 82 Year
  Sex: Male
  Weight: 109.8 kg

DRUGS (16)
  1. REVLIMID [Suspect]
     Active Substance: LENALIDOMIDE
     Indication: Plasma cell myeloma
     Dosage: EVERY 14DAYS
     Route: 048
     Dates: start: 20220427
  2. AMLODIPINE [Concomitant]
     Active Substance: AMLODIPINE BESYLATE
  3. VITAMIN C [Concomitant]
     Active Substance: ASCORBIC ACID
  4. ASPIRIN [Concomitant]
     Active Substance: ASPIRIN
  5. VITAMIN B12 [Concomitant]
     Active Substance: CYANOCOBALAMIN
  6. DORZOLAMIDE\TIMOLOL [Concomitant]
     Active Substance: DORZOLAMIDE\TIMOLOL
  7. LEVETIRACETAM [Concomitant]
     Active Substance: LEVETIRACETAM
  8. LISINOPRIL [Concomitant]
     Active Substance: LISINOPRIL
  9. DARZALEX [Concomitant]
     Active Substance: DARATUMUMAB
  10. LORATADINE [Concomitant]
     Active Substance: LORATADINE
  11. METFORMIN [Concomitant]
     Active Substance: METFORMIN HYDROCHLORIDE
  12. NYSTATIN [Concomitant]
     Active Substance: NYSTATIN
  13. PRAVASTATIN [Concomitant]
     Active Substance: PRAVASTATIN
  14. TIMOLOL [Concomitant]
     Active Substance: TIMOLOL
  15. TRIAMCINOLONE [Concomitant]
     Active Substance: TRIAMCINOLONE
  16. DEXAMETHASONE [Concomitant]
     Active Substance: DEXAMETHASONE

REACTIONS (2)
  - Neutropenia [Unknown]
  - Off label use [Unknown]
